FAERS Safety Report 7539843-4 (Version None)
Quarter: 2011Q2

REPORT INFORMATION
  Report Type: 
  Country: None (occurrence: None)
  Receive Date: 20110610
  Receipt Date: 20110526
  Transmission Date: 20111010
  Serious: Yes (Other)
  Sender: FDA-Public Use
  Company Number: US-SHIRE-ALL1-2011-01640

PATIENT
  Sex: Male

DRUGS (2)
  1. VYVANSE [Suspect]
     Indication: ATTENTION DEFICIT/HYPERACTIVITY DISORDER
     Dosage: 40 MG, 1X/DAY:QD
     Route: 048
     Dates: start: 20101201
  2. VYVANSE [Suspect]
     Dosage: 20 MG, UNKNOWN
     Route: 065
     Dates: start: 20100501, end: 20101201

REACTIONS (3)
  - HEART RATE INCREASED [None]
  - CHEST PAIN [None]
  - PANIC ATTACK [None]
